FAERS Safety Report 12096030 (Version 1)
Quarter: 2016Q1

REPORT INFORMATION
  Report Type: Other
  Country: US (occurrence: US)
  Receive Date: 20160220
  Receipt Date: 20160220
  Transmission Date: 20160526
  Serious: No
  Sender: FDA-Public Use
  Company Number: US-ACORDA-ACO_109865_2015

PATIENT
  Age: 64 Year
  Sex: Female

DRUGS (2)
  1. KLONOPIN [Concomitant]
     Active Substance: CLONAZEPAM
     Indication: PRODUCT USED FOR UNKNOWN INDICATION
     Dosage: UNK
     Route: 065
  2. AMPYRA [Suspect]
     Active Substance: DALFAMPRIDINE
     Indication: PARKINSON^S DISEASE
     Dosage: 10 MG, Q 12 HRS
     Route: 048
     Dates: start: 20150306, end: 20150310

REACTIONS (3)
  - Disturbance in attention [Unknown]
  - Product use issue [Unknown]
  - Confusional state [Unknown]

NARRATIVE: CASE EVENT DATE: 20150306
